FAERS Safety Report 12899033 (Version 1)
Quarter: 2016Q4

REPORT INFORMATION
  Report Type: Spontaneous
  Country: IN (occurrence: IN)
  Receive Date: 20161101
  Receipt Date: 20161101
  Transmission Date: 20170207
  Serious: Yes (Other)
  Sender: FDA-Public Use
  Company Number: IN-ASTRAZENECA-2016SF12726

PATIENT
  Age: 49 Year
  Sex: Female
  Weight: 76 kg

DRUGS (10)
  1. DYTOR PLUS [Concomitant]
     Indication: MITRAL VALVE STENOSIS
  2. DILZEM [Concomitant]
     Active Substance: DILTIAZEM
     Indication: RHEUMATIC HEART DISEASE
  3. DYTOR PLUS [Concomitant]
     Indication: AORTIC VALVE INCOMPETENCE
  4. ZOLADEX [Suspect]
     Active Substance: GOSERELIN ACETATE
     Indication: DYSFUNCTIONAL UTERINE BLEEDING
     Dosage: 3.6MG UNKNOWN
     Route: 058
  5. DYTOR PLUS [Concomitant]
     Indication: RHEUMATIC HEART DISEASE
  6. DYTOR PLUS [Concomitant]
     Indication: MITRAL VALVE INCOMPETENCE
  7. DILZEM [Concomitant]
     Active Substance: DILTIAZEM
     Indication: AORTIC VALVE INCOMPETENCE
  8. DILZEM [Concomitant]
     Active Substance: DILTIAZEM
     Indication: MITRAL VALVE INCOMPETENCE
  9. DIURETIC [Concomitant]
     Active Substance: UNSPECIFIED INGREDIENT
  10. DILZEM [Concomitant]
     Active Substance: DILTIAZEM
     Indication: MITRAL VALVE STENOSIS

REACTIONS (3)
  - Left ventricular failure [Recovered/Resolved]
  - Anuria [Recovered/Resolved]
  - Hyperchlorhydria [Recovered/Resolved]

NARRATIVE: CASE EVENT DATE: 201609
